FAERS Safety Report 25628713 (Version 1)
Quarter: 2025Q3

REPORT INFORMATION
  Report Type: Report from Study
  Country: US (occurrence: US)
  Receive Date: 20250731
  Receipt Date: 20250731
  Transmission Date: 20251020
  Serious: Yes (Other)
  Sender: ABBVIE
  Company Number: US-ABBVIE-6392915

PATIENT
  Age: 53 Year
  Sex: Male

DRUGS (1)
  1. RINVOQ [Suspect]
     Active Substance: UPADACITINIB
     Indication: Dermatitis atopic
     Route: 048
     Dates: start: 20240802

REACTIONS (5)
  - Arthrodesis [Recovering/Resolving]
  - Stress [Unknown]
  - Anxiety [Unknown]
  - Presyncope [Recovered/Resolved]
  - Panic attack [Unknown]

NARRATIVE: CASE EVENT DATE: 20250101
